APPROVED DRUG PRODUCT: CU-7
Active Ingredient: COPPER
Strength: 89MG
Dosage Form/Route: INTRAUTERINE DEVICE;INTRAUTERINE
Application: N017408 | Product #001
Applicant: GD SEARLE LLC
Approved: Approved Prior to Jan 1, 1982 | RLD: No | RS: No | Type: DISCN